FAERS Safety Report 8366554-8 (Version None)
Quarter: 2012Q2

REPORT INFORMATION
  Report Type: 
  Country: None (occurrence: None)
  Receive Date: 20120517
  Receipt Date: 20120510
  Transmission Date: 20120825
  Serious: Yes (Hospitalization)
  Sender: FDA-Public Use
  Company Number: BR-US-EMD SERONO, INC.-7038967

PATIENT
  Sex: Male

DRUGS (5)
  1. REBIF [Suspect]
     Indication: RELAPSING-REMITTING MULTIPLE SCLEROSIS
     Dates: start: 20050704
  2. ACETAMINOPHEN [Concomitant]
     Indication: PRODUCT USED FOR UNKNOWN INDICATION
  3. TYLENOL (CAPLET) [Concomitant]
     Indication: PRODUCT USED FOR UNKNOWN INDICATION
  4. BACLOFEN [Concomitant]
     Indication: PRODUCT USED FOR UNKNOWN INDICATION
  5. ADERA D3 [Concomitant]
     Indication: PRODUCT USED FOR UNKNOWN INDICATION

REACTIONS (11)
  - INFLUENZA [None]
  - FEELING COLD [None]
  - CRYING [None]
  - ERYTHEMA [None]
  - PHOTOPSIA [None]
  - WRONG TECHNIQUE IN DRUG USAGE PROCESS [None]
  - MONOPLEGIA [None]
  - INJECTION SITE NODULE [None]
  - PYREXIA [None]
  - DEPRESSED MOOD [None]
  - INJECTION SITE MASS [None]
